FAERS Safety Report 5442956-4 (Version None)
Quarter: 2007Q3

REPORT INFORMATION
  Report Type: 
  Country: None (occurrence: None)
  Receive Date: 20070905
  Receipt Date: 20070823
  Transmission Date: 20080115
  Serious: Yes (Death)
  Sender: FDA-Public Use
  Company Number: US-JNJFOC-20070805962

PATIENT
  Age: 4 Month
  Sex: Male

DRUGS (3)
  1. ACETAMINOPHEN/PHENYLEPHRINE HCL/CHLORPHENIRAMINE MALEATE [Suspect]
     Indication: UPPER RESPIRATORY TRACT INFECTION
  2. CHLORPHENIRAMINE MAL/DEXTROMETHORPHAN HBR/PSEUDOEPHEDRINE HCL [Suspect]
     Indication: UPPER RESPIRATORY TRACT INFECTION
  3. BROMPHENIRAMINE [Suspect]
     Indication: UPPER RESPIRATORY TRACT INFECTION

REACTIONS (2)
  - CARDIO-RESPIRATORY ARREST [None]
  - MEDICATION ERROR [None]
